FAERS Safety Report 13926930 (Version 3)
Quarter: 2018Q1

REPORT INFORMATION
  Report Type: Spontaneous
  Country: US (occurrence: US)
  Receive Date: 20170901
  Receipt Date: 20180306
  Transmission Date: 20180508
  Serious: No
  Sender: FDA-Public Use
  Company Number: US-BRISTOL-MYERS SQUIBB COMPANY-BMS-2017-078722

PATIENT
  Sex: Male
  Weight: 79.37 kg

DRUGS (2)
  1. DASATINIB. [Suspect]
     Active Substance: DASATINIB
     Indication: CHRONIC MYELOID LEUKAEMIA
     Dosage: 100 MG, QD
     Route: 048
     Dates: start: 201707
  2. DASATINIB. [Suspect]
     Active Substance: DASATINIB
     Indication: PRODUCT USED FOR UNKNOWN INDICATION
     Dosage: 50 MG, QD
     Route: 048
     Dates: start: 201707

REACTIONS (8)
  - Headache [Unknown]
  - Nausea [Unknown]
  - Adverse event [Unknown]
  - Visual impairment [Unknown]
  - Abdominal distension [Unknown]
  - Decreased appetite [Unknown]
  - White blood cell count decreased [Unknown]
  - Rash [Unknown]
